FAERS Safety Report 18815420 (Version 1)
Quarter: 2021Q1

REPORT INFORMATION
  Report Type: Spontaneous
  Country: US (occurrence: US)
  Receive Date: 20210129
  Receipt Date: 20210129
  Transmission Date: 20210419
  Serious: Yes (Other)
  Sender: FDA-Public Use
  Company Number: None

PATIENT
  Age: 27 Year
  Sex: Female
  Weight: 72 kg

DRUGS (4)
  1. DILTIAZEM 2% OINTMENT [Suspect]
     Active Substance: DILTIAZEM
     Indication: ANAL FISSURE
     Route: 054
     Dates: start: 20210119
  2. ZOLOFT [Concomitant]
     Active Substance: SERTRALINE HYDROCHLORIDE
  3. FISH OIL [Concomitant]
     Active Substance: FISH OIL
  4. BIOTIN [Concomitant]
     Active Substance: BIOTIN

REACTIONS (8)
  - Feeling hot [None]
  - Hyperhidrosis [None]
  - Visual impairment [None]
  - Pyrexia [None]
  - Muscle spasms [None]
  - Chills [None]
  - Syncope [None]
  - Headache [None]

NARRATIVE: CASE EVENT DATE: 20210126
